FAERS Safety Report 26177650 (Version 1)
Quarter: 2025Q4

REPORT INFORMATION
  Report Type: Spontaneous
  Country: US (occurrence: US)
  Receive Date: 20251219
  Receipt Date: 20251219
  Transmission Date: 20260117
  Serious: No
  Sender: SUPERNUS PHARMACEUTICALS, INC
  Company Number: US-002147023-SUP202402-000565

PATIENT
  Sex: Female

DRUGS (4)
  1. TROKENDI XR [Suspect]
     Active Substance: TOPIRAMATE
     Indication: Migraine
     Dosage: 300 MG
  2. TROKENDI XR [Suspect]
     Active Substance: TOPIRAMATE
  3. TROKENDI XR [Suspect]
     Active Substance: TOPIRAMATE
  4. AIMOVIG [Concomitant]
     Active Substance: ERENUMAB-AOOE
     Dosage: 140 MG

REACTIONS (2)
  - Drug ineffective [Unknown]
  - Inability to afford medication [Unknown]
